FAERS Safety Report 9678452 (Version 1)
Quarter: 2013Q4

REPORT INFORMATION
  Report Type: Spontaneous
  Country: AR (occurrence: AR)
  Receive Date: 20131108
  Receipt Date: 20131108
  Transmission Date: 20140711
  Serious: Yes (Other)
  Sender: FDA-Public Use
  Company Number: AR-BRISTOL-MYERS SQUIBB COMPANY-19789197

PATIENT
  Sex: Female

DRUGS (3)
  1. NULOJIX [Suspect]
     Indication: RENAL TRANSPLANT
  2. MYFORTIC [Concomitant]
  3. HYDROXYCHLOROQUINE SULFATE [Concomitant]

REACTIONS (3)
  - Aphasia [Recovered/Resolved with Sequelae]
  - Photophobia [Not Recovered/Not Resolved]
  - Off label use [Unknown]
